FAERS Safety Report 13101782 (Version 1)
Quarter: 2017Q1

REPORT INFORMATION
  Report Type: Spontaneous
  Country: US (occurrence: US)
  Receive Date: 20170110
  Receipt Date: 20170110
  Transmission Date: 20170428
  Serious: No
  Sender: FDA-Public Use
  Company Number: US-009507513-1701USA003990

PATIENT
  Sex: Female
  Weight: 61 kg

DRUGS (4)
  1. LORATADINE 5 MG (+) PSEUDOEPHEDRINE SULFATE 120 MG [Suspect]
     Active Substance: LORATADINE\PSEUDOEPHEDRINE SULFATE
     Indication: PSORIASIS
  2. ALBUTEROL SULFATE. [Suspect]
     Active Substance: ALBUTEROL SULFATE
  3. PERMETHRIN (+) PIPERONYL BUTOXIDE [Suspect]
     Active Substance: PERMETHRIN\PIPERONYL BUTOXIDE
     Indication: LICE INFESTATION
     Dosage: 1 DF, UNK
     Route: 061
  4. PROVENTIL [Suspect]
     Active Substance: ALBUTEROL

REACTIONS (3)
  - Pruritus [Unknown]
  - Product use issue [Unknown]
  - Pruritus [None]
